FAERS Safety Report 13510070 (Version 5)
Quarter: 2018Q3

REPORT INFORMATION
  Report Type: Report from Study
  Country: BR (occurrence: BR)
  Receive Date: 20170503
  Receipt Date: 20180926
  Transmission Date: 20181010
  Serious: Yes (Hospitalization, Other)
  Sender: FDA-Public Use
  Company Number: BR-JNJFOC-20170501387

PATIENT
  Age: 64 Year
  Sex: Female
  Weight: 96 kg

DRUGS (6)
  1. PURAN [Concomitant]
     Active Substance: LEVOTHYROXINE SODIUM
     Route: 065
  2. FOLIC ACID. [Concomitant]
     Active Substance: FOLIC ACID
     Route: 065
  3. VITAMINE D [Concomitant]
     Route: 065
  4. SIMPONI [Suspect]
     Active Substance: GOLIMUMAB
     Indication: PSORIATIC ARTHROPATHY
     Route: 058
     Dates: start: 2017
  5. SIMPONI [Suspect]
     Active Substance: GOLIMUMAB
     Indication: RHEUMATOID ARTHRITIS
     Route: 058
     Dates: start: 2017
  6. METHOTREXATE. [Concomitant]
     Active Substance: METHOTREXATE
     Route: 065

REACTIONS (14)
  - Urinary tract infection [Not Recovered/Not Resolved]
  - Device malfunction [Unknown]
  - Arthralgia [Not Recovered/Not Resolved]
  - Tendonitis [Recovering/Resolving]
  - Cholecystectomy [Unknown]
  - Injection site pain [Unknown]
  - Weight increased [Unknown]
  - Accidental exposure to product [Unknown]
  - Hypoaesthesia [Not Recovered/Not Resolved]
  - Synovitis [Unknown]
  - Drug dose omission [Unknown]
  - Nephrolithiasis [Unknown]
  - Drug ineffective [Unknown]
  - Pain in extremity [Not Recovered/Not Resolved]

NARRATIVE: CASE EVENT DATE: 2017
